FAERS Safety Report 9205714 (Version 2)
Quarter: 2013Q2

REPORT INFORMATION
  Report Type: Spontaneous
  Country: US (occurrence: US)
  Receive Date: 20130403
  Receipt Date: 20130517
  Transmission Date: 20140414
  Serious: Yes (Other)
  Sender: FDA-Public Use
  Company Number: US-AMGEN-USASP2013021573

PATIENT
  Age: 75 Year
  Sex: Female
  Weight: 58.5 kg

DRUGS (6)
  1. PROLIA [Suspect]
     Indication: OSTEOPOROSIS POSTMENOPAUSAL
     Dosage: 60 MG, UNK
     Dates: start: 20130208
  2. LEXAPRO [Concomitant]
     Dosage: 1 DF, QD
  3. DITROPAN [Concomitant]
     Dosage: 1 DF, BID
  4. TENORMIN [Concomitant]
     Dosage: 1 DF, QD
  5. OMEPRAZOLE [Concomitant]
     Dosage: 1 DF, QD
  6. VICODIN [Concomitant]
     Dosage: 1 DF, QD

REACTIONS (4)
  - Rib fracture [Unknown]
  - Muscle spasms [Recovered/Resolved]
  - Incorrect route of drug administration [Unknown]
  - Chest pain [Not Recovered/Not Resolved]
